FAERS Safety Report 11213894 (Version 1)
Quarter: 2015Q2

REPORT INFORMATION
  Report Type: Spontaneous
  Country: US (occurrence: None)
  Receive Date: 20150622
  Receipt Date: 20150622
  Transmission Date: 20150821
  Serious: No
  Sender: FDA-Public Use
  Company Number: None

PATIENT
  Age: 59 Day
  Sex: Male
  Weight: 98.88 kg

DRUGS (4)
  1. AMBIEN [Concomitant]
     Active Substance: ZOLPIDEM TARTRATE
  2. MULTIVITAMIN [Concomitant]
     Active Substance: VITAMINS
  3. CLARITHROMAYCIN [Suspect]
     Active Substance: CLARITHROMYCIN
     Indication: BRONCHITIS
     Dosage: 1 TABLET TWICE DAILY TAKEN BY MOUTH
     Route: 048
     Dates: start: 20150609, end: 20150619
  4. FISH OIL [Concomitant]
     Active Substance: FISH OIL

REACTIONS (4)
  - Hypoaesthesia [None]
  - Back pain [None]
  - Nervousness [None]
  - Pain [None]

NARRATIVE: CASE EVENT DATE: 20150610
